FAERS Safety Report 20899709 (Version 1)
Quarter: 2022Q2

REPORT INFORMATION
  Report Type: Spontaneous
  Country: US (occurrence: None)
  Receive Date: 20220531
  Receipt Date: 20220531
  Transmission Date: 20220721
  Serious: Yes (unspecified)
  Sender: FDA-Public Use
  Company Number: None

PATIENT
  Age: 72 Year
  Sex: Female
  Weight: 63 kg

DRUGS (1)
  1. PAXLOVID [Suspect]
     Active Substance: NIRMATRELVIR\RITONAVIR
     Indication: SARS-CoV-2 test positive
     Dosage: FREQUENCY : TWICE A DAY;?
     Route: 048
     Dates: start: 20220517, end: 20220521

REACTIONS (2)
  - Malaise [None]
  - COVID-19 [None]

NARRATIVE: CASE EVENT DATE: 20220531
